FAERS Safety Report 9124866 (Version 3)
Quarter: 2013Q2

REPORT INFORMATION
  Report Type: Spontaneous
  Country: SE (occurrence: SE)
  Receive Date: 20130227
  Receipt Date: 20130510
  Transmission Date: 20140414
  Serious: Yes (Life-Threatening, Hospitalization)
  Sender: FDA-Public Use
  Company Number: SE-ABBOTT-13P-150-1053660-00

PATIENT
  Age: 11 Year
  Sex: Male

DRUGS (3)
  1. HUMIRA [Suspect]
     Indication: JUVENILE IDIOPATHIC ARTHRITIS
     Route: 058
     Dates: start: 201210, end: 20130130
  2. BUDESONIDE [Concomitant]
     Indication: ASTHMA EXERCISE INDUCED
  3. METHOTREXATE [Concomitant]
     Indication: JUVENILE IDIOPATHIC ARTHRITIS
     Route: 048
     Dates: start: 201108, end: 20130201

REACTIONS (5)
  - Splenomegaly [Recovering/Resolving]
  - Splenomegaly [Not Recovered/Not Resolved]
  - Infectious mononucleosis [Recovering/Resolving]
  - Viral infection [Not Recovered/Not Resolved]
  - Antinuclear antibody positive [Unknown]
